FAERS Safety Report 9824162 (Version 1)
Quarter: 2014Q1

REPORT INFORMATION
  Report Type: Spontaneous
  Country: US (occurrence: US)
  Receive Date: 20140116
  Receipt Date: 20140116
  Transmission Date: 20141002
  Serious: Yes (Hospitalization)
  Sender: FDA-Public Use
  Company Number: US-GLAXOSMITHKLINE-A1056406A

PATIENT
  Age: 72 Year
  Sex: Male

DRUGS (8)
  1. ADVAIR [Suspect]
     Indication: CHRONIC OBSTRUCTIVE PULMONARY DISEASE
     Dosage: 1PUFF TWICE PER DAY
     Route: 055
     Dates: start: 2004
  2. BENZONATATE [Concomitant]
  3. VERAPAMIL [Concomitant]
  4. TERAZOSIN [Concomitant]
  5. CARVEDILOL [Concomitant]
  6. HYDROCODONE [Concomitant]
  7. FERROUS SULFATE [Concomitant]
  8. OXYGEN [Concomitant]

REACTIONS (5)
  - Lung abscess [Recovering/Resolving]
  - Lung operation [Unknown]
  - Endotracheal intubation [Recovering/Resolving]
  - Dyspnoea [Recovering/Resolving]
  - Sputum increased [Recovering/Resolving]
